FAERS Safety Report 6493416-3 (Version None)
Quarter: 2009Q4

REPORT INFORMATION
  Report Type: 
  Country: None (occurrence: None)
  Receive Date: 20091211
  Receipt Date: 20091211
  Transmission Date: 20100525
  Serious: Yes (Other)
  Sender: FDA-Public Use
  Company Number: None

PATIENT
  Age: 24 Year
  Sex: Male
  Weight: 79.5 kg

DRUGS (1)
  1. FLUCONAZOLE [Suspect]
     Indication: FUNGAL INFECTION
     Dosage: 150 MG 1X DAILY ORAL
     Route: 048
     Dates: start: 20090601, end: 20090601

REACTIONS (3)
  - DIZZINESS [None]
  - QUALITY OF LIFE DECREASED [None]
  - VERTIGO [None]
